FAERS Safety Report 7307658-8 (Version None)
Quarter: 2011Q1

REPORT INFORMATION
  Report Type: 
  Country: None (occurrence: None)
  Receive Date: 20110223
  Receipt Date: 20110216
  Transmission Date: 20110831
  Serious: Yes (Other)
  Sender: FDA-Public Use
  Company Number: JP-SANOFI-AVENTIS-2011SA009074

PATIENT
  Sex: Female

DRUGS (4)
  1. TRASTUZUMAB [Concomitant]
     Indication: BREAST CANCER
  2. TAXOTERE [Suspect]
     Indication: BREAST CANCER
     Route: 041
  3. TAXOTERE [Suspect]
     Route: 041
  4. ZOMETA [Concomitant]
     Indication: BREAST CANCER

REACTIONS (3)
  - MUSCLE SPASMS [None]
  - RENAL TUBULAR DISORDER [None]
  - HYPOCALCAEMIA [None]
